FAERS Safety Report 19395798 (Version 1)
Quarter: 2021Q2

REPORT INFORMATION
  Report Type: Spontaneous
  Country: US (occurrence: US)
  Receive Date: 20210609
  Receipt Date: 20210609
  Transmission Date: 20210717
  Serious: No
  Sender: FDA-Public Use
  Company Number: US-MYLANLABS-2021M1030542

PATIENT
  Age: 35 Year
  Sex: Female
  Weight: 74 kg

DRUGS (1)
  1. PROCTOFOAM HC [Suspect]
     Active Substance: HYDROCORTISONE ACETATE\PRAMOXINE HYDROCHLORIDE
     Indication: HAEMORRHOIDS
     Dosage: 1/1 PERCENT,BID, APPLY ONE APPLICATOR FULL TWICE DAY FOR UP TO SEVEN DAYS
     Route: 054
     Dates: start: 20210521, end: 20210521

REACTIONS (3)
  - Device issue [Unknown]
  - Product quality issue [Unknown]
  - Incorrect dose administered by device [Unknown]

NARRATIVE: CASE EVENT DATE: 20210521
